FAERS Safety Report 7357013-X (Version None)
Quarter: 2011Q1

REPORT INFORMATION
  Report Type: 
  Country: None (occurrence: None)
  Receive Date: 20110310
  Receipt Date: 20110310
  Transmission Date: 20110831
  Serious: Yes (Hospitalization)
  Sender: FDA-Public Use
  Company Number: None

PATIENT
  Age: 42 Year
  Sex: Male
  Weight: 117.028 kg

DRUGS (9)
  1. VITAMIN D [Concomitant]
  2. LORATADINE [Concomitant]
  3. TOPAMAX [Concomitant]
  4. PROPRANOLOL [Concomitant]
  5. ZIPRASIDONE HCL [Suspect]
     Indication: SCHIZOPHRENIA
     Dosage: 60MG BID 80 MG BID
     Dates: start: 20101018, end: 20101021
  6. ZIPRASIDONE HCL [Suspect]
     Indication: SCHIZOPHRENIA
     Dosage: 60MG BID 80 MG BID
     Dates: start: 20101021
  7. REICOR [Concomitant]
  8. LAMICTAL [Concomitant]
  9. ATARAX [Concomitant]

REACTIONS (2)
  - VERBAL ABUSE [None]
  - ABNORMAL BEHAVIOUR [None]
